FAERS Safety Report 8381979-2 (Version None)
Quarter: 2012Q2

REPORT INFORMATION
  Report Type: 
  Country: None (occurrence: None)
  Receive Date: 20120524
  Receipt Date: 20120521
  Transmission Date: 20120825
  Serious: Yes (Other)
  Sender: FDA-Public Use
  Company Number: FR-BAYER-2012-050743

PATIENT
  Age: 65 Year
  Sex: Female

DRUGS (1)
  1. ACARBOSE [Suspect]
     Indication: DIABETES MELLITUS MANAGEMENT
     Dosage: 100 MG, QD
     Route: 048

REACTIONS (1)
  - RECTAL HAEMORRHAGE [None]
